FAERS Safety Report 8822915 (Version 1)
Quarter: 2012Q4

REPORT INFORMATION
  Report Type: 
  Country: BR (occurrence: BR)
  Receive Date: 20121003
  Receipt Date: 20121003
  Transmission Date: 20130627
  Serious: Yes (Hospitalization)
  Sender: FDA-Public Use
  Company Number: PHHY2012BR085648

PATIENT
  Sex: Female

DRUGS (2)
  1. RITALIN LA [Suspect]
     Dosage: 20 mg, UNK
  2. ANTIDEPRESSANTS [Concomitant]

REACTIONS (3)
  - Irritability [Recovered/Resolved]
  - Drug intolerance [Recovered/Resolved]
  - Dehydration [Recovered/Resolved]
